FAERS Safety Report 17075841 (Version 1)
Quarter: 2019Q4

REPORT INFORMATION
  Report Type: Spontaneous
  Country: US (occurrence: US)
  Receive Date: 20191126
  Receipt Date: 20191126
  Transmission Date: 20200122
  Serious: No
  Sender: FDA-Public Use
  Company Number: US-BAYER-2019-213443

PATIENT
  Age: 95 Year
  Sex: Female
  Weight: 54 kg

DRUGS (8)
  1. CLARITIN [Suspect]
     Active Substance: LORATADINE
     Indication: NASOPHARYNGITIS
  2. ELIQUIS [Concomitant]
     Active Substance: APIXABAN
     Dosage: UNK
  3. ONE-A-DAY [MINERALS NOS;VITAMINS NOS] [Concomitant]
  4. CLARITIN [Suspect]
     Active Substance: LORATADINE
     Indication: ALLERGIC RESPIRATORY SYMPTOM
     Route: 048
     Dates: start: 20191121, end: 20191125
  5. MINERALS NOS;VITAMINS NOS [Concomitant]
     Active Substance: MINERALS\VITAMINS
  6. VITAMINS NOS [Concomitant]
     Active Substance: VITAMINS
  7. VITAMIN D [VITAMIN D NOS] [Concomitant]
     Active Substance: VITAMIN D NOS
  8. EYE DROPS [NAPHAZOLINE HYDROCHLORIDE] [Concomitant]

REACTIONS (1)
  - Drug ineffective [Not Recovered/Not Resolved]

NARRATIVE: CASE EVENT DATE: 20191121
